FAERS Safety Report 15568404 (Version 1)
Quarter: 2018Q4

REPORT INFORMATION
  Report Type: Spontaneous
  Country: US (occurrence: US)
  Receive Date: 20181031
  Receipt Date: 20181031
  Transmission Date: 20190205
  Serious: No
  Sender: FDA-Public Use
  Company Number: US-AMGEN-USASP2018150932

PATIENT
  Age: 71 Year
  Sex: Female

DRUGS (1)
  1. ENBREL [Suspect]
     Active Substance: ETANERCEPT
     Indication: RHEUMATOID ARTHRITIS
     Dosage: 50 MG, QWK
     Route: 065
     Dates: start: 20181002

REACTIONS (4)
  - Injection site rash [Recovered/Resolved]
  - Injection site pruritus [Recovered/Resolved]
  - Rosacea [Recovering/Resolving]
  - Injection site erythema [Recovered/Resolved]

NARRATIVE: CASE EVENT DATE: 201810
